FAERS Safety Report 8787780 (Version 2)
Quarter: 2015Q3

REPORT INFORMATION
  Report Type: Report from Study
  Country: US (occurrence: US)
  Receive Date: 20120914
  Receipt Date: 20150811
  Transmission Date: 20151125
  Serious: Yes (Death)
  Sender: FDA-Public Use
  Company Number: US-ROCHE-1127553

PATIENT
  Sex: Female
  Weight: 65 kg

DRUGS (2)
  1. AVASTIN [Suspect]
     Active Substance: BEVACIZUMAB
     Indication: MALIGNANT NEOPLASM OF PLEURA
     Route: 065
     Dates: start: 20090311
  2. AVASTIN [Suspect]
     Active Substance: BEVACIZUMAB
     Indication: UTERINE CANCER
     Route: 065
     Dates: start: 20090401

REACTIONS (2)
  - Off label use [Unknown]
  - Death [Fatal]
